FAERS Safety Report 15976459 (Version 1)
Quarter: 2019Q1

REPORT INFORMATION
  Report Type: Spontaneous
  Country: US (occurrence: US)
  Receive Date: 20190218
  Receipt Date: 20190218
  Transmission Date: 20190418
  Serious: Yes (Hospitalization)
  Sender: FDA-Public Use
  Company Number: US-DSJP-DSU-2017-144734

PATIENT

DRUGS (2)
  1. BENICAR [Suspect]
     Active Substance: OLMESARTAN MEDOXOMIL
     Indication: PRODUCT USED FOR UNKNOWN INDICATION
     Dosage: 40 MG, QD
     Route: 048
     Dates: start: 20051013, end: 20130410
  2. BENICAR HCT [Suspect]
     Active Substance: HYDROCHLOROTHIAZIDE\OLMESARTAN MEDOXOMIL
     Indication: HYPERTENSION
     Dosage: 40-25MG, UNK
     Dates: end: 20060512

REACTIONS (4)
  - Coeliac disease [Recovering/Resolving]
  - Non-cardiac chest pain [Recovering/Resolving]
  - Polyp [Recovered/Resolved]
  - Hiatus hernia [Recovering/Resolving]

NARRATIVE: CASE EVENT DATE: 20060313
